FAERS Safety Report 18101389 (Version 1)
Quarter: 2020Q3

REPORT INFORMATION
  Report Type: Spontaneous
  Country: US (occurrence: US)
  Receive Date: 20200801
  Receipt Date: 20200801
  Transmission Date: 20201103
  Serious: No
  Sender: FDA-Public Use
  Company Number: US-ASTRAZENECA-2020SE92805

PATIENT
  Age: 52 Year
  Sex: Male

DRUGS (2)
  1. FARXIGA [Suspect]
     Active Substance: DAPAGLIFLOZIN PROPANEDIOL
     Indication: CARDIAC DISORDER
     Route: 048
     Dates: start: 20200714, end: 20200719
  2. BENADRYL [Concomitant]
     Active Substance: DIPHENHYDRAMINE HYDROCHLORIDE

REACTIONS (18)
  - Visual impairment [Unknown]
  - Loss of consciousness [Unknown]
  - Cardiac disorder [Unknown]
  - Asthenia [Unknown]
  - Malaise [Recovering/Resolving]
  - Glucose tolerance impaired [Unknown]
  - Throat tightness [Unknown]
  - Drug hypersensitivity [Unknown]
  - Nausea [Recovering/Resolving]
  - Hypophagia [Unknown]
  - Feeling abnormal [Unknown]
  - Heart rate decreased [Unknown]
  - Blood glucose decreased [Unknown]
  - Palpitations [Unknown]
  - Dyspnoea [Recovering/Resolving]
  - Vomiting [Unknown]
  - Somnolence [Unknown]
  - Agitation [Unknown]

NARRATIVE: CASE EVENT DATE: 20200716
